FAERS Safety Report 5624187-8 (Version None)
Quarter: 2008Q1

REPORT INFORMATION
  Report Type: 
  Country: None (occurrence: None)
  Receive Date: 20080213
  Receipt Date: 20080208
  Transmission Date: 20080703
  Serious: Yes (Death, Other)
  Sender: FDA-Public Use
  Company Number: PHHO2008DE01321

PATIENT
  Age: 20 Year
  Sex: Male
  Weight: 69 kg

DRUGS (18)
  1. STI571 OR PLACEBO [Suspect]
     Indication: PULMONARY HYPERTENSION
     Dosage: 200MG DAILY
     Route: 048
     Dates: start: 20061128
  2. STI571 OR PLACEBO [Suspect]
     Dosage: 400 MG, UNK
     Route: 048
     Dates: start: 20061230
  3. GLEEVEC [Suspect]
     Indication: PULMONARY HYPERTENSION
     Route: 048
     Dates: start: 20070516
  4. GLEEVEC [Suspect]
     Dosage: 400 MG, UNK
     Route: 048
  5. GLEEVEC [Suspect]
     Dosage: 200 MG, UNK
     Route: 048
  6. OMEPRAZOLE [Concomitant]
     Indication: DYSPEPSIA
  7. KALIUM [Concomitant]
  8. REKAWAN [Concomitant]
  9. TOREM [Concomitant]
     Indication: OEDEMA
  10. SPIRO [Concomitant]
     Indication: OEDEMA
  11. AQUAPHOR [Concomitant]
     Indication: OEDEMA
  12. HCT CT [Concomitant]
     Indication: OEDEMA
  13. SILOMAT [Concomitant]
     Indication: COUGH
  14. MARCUMAR [Concomitant]
     Indication: PULMONARY HYPERTENSION
  15. TRACLEER [Concomitant]
     Indication: PULMONARY HYPERTENSION
  16. BOSENTAN [Concomitant]
  17. ANTICOAGULANTS [Concomitant]
  18. SILDENAFIL CITRATE [Concomitant]

REACTIONS (9)
  - ARRHYTHMIA [None]
  - BLOOD POTASSIUM DECREASED [None]
  - COUGH [None]
  - DYSPNOEA [None]
  - INCREASED BRONCHIAL SECRETION [None]
  - OEDEMA PERIPHERAL [None]
  - RIGHT VENTRICULAR FAILURE [None]
  - TRACHEITIS [None]
  - WEIGHT INCREASED [None]
